FAERS Safety Report 7036124-2 (Version None)
Quarter: 2010Q4

REPORT INFORMATION
  Report Type: 
  Country: None (occurrence: None)
  Receive Date: 20101008
  Receipt Date: 20091221
  Transmission Date: 20110411
  Serious: No
  Sender: FDA-Public Use
  Company Number: US-BRISTOL-MYERS SQUIBB COMPANY-14914196

PATIENT
  Age: 67 Year
  Sex: Male

DRUGS (1)
  1. AVAPRO [Suspect]
     Indication: BLOOD PRESSURE MANAGEMENT
     Dosage: 1 DOSAGE FORM = 150MG TO 300MG
     Dates: start: 20090101, end: 20091201

REACTIONS (3)
  - COUGH [None]
  - DRUG INEFFECTIVE [None]
  - FATIGUE [None]
